FAERS Safety Report 5938014-2 (Version None)
Quarter: 2008Q4

REPORT INFORMATION
  Report Type: 
  Country: None (occurrence: None)
  Receive Date: 20081031
  Receipt Date: 20081021
  Transmission Date: 20090506
  Serious: No
  Sender: FDA-Public Use
  Company Number: JP-PFIZER INC-2008084988

PATIENT
  Sex: Female

DRUGS (3)
  1. CELECOX [Suspect]
     Indication: OSTEOARTHRITIS
     Dosage: DAILY DOSE:200MG
     Route: 048
     Dates: start: 20071226
  2. VESICARE [Concomitant]
  3. ALOSENN [Concomitant]

REACTIONS (1)
  - GASTRIC CANCER [None]
